FAERS Safety Report 14247593 (Version 2)
Quarter: 2018Q2

REPORT INFORMATION
  Report Type: Spontaneous
  Country: US (occurrence: US)
  Receive Date: 20171204
  Receipt Date: 20180531
  Transmission Date: 20180711
  Serious: Yes (Life-Threatening, Hospitalization, Other)
  Sender: FDA-Public Use
  Company Number: US-JNJFOC-20171101834

PATIENT
  Age: 67 Year
  Sex: Male

DRUGS (26)
  1. XARELTO [Suspect]
     Active Substance: RIVAROXABAN
     Indication: PRODUCT USED FOR UNKNOWN INDICATION
     Route: 048
  2. BOSENTAN. [Suspect]
     Active Substance: BOSENTAN
     Indication: PULMONARY HYPERTENSION
     Route: 048
  3. VELCADE [Suspect]
     Active Substance: BORTEZOMIB
     Indication: PLASMA CELL MYELOMA
     Route: 065
  4. DIGOXIN. [Concomitant]
     Active Substance: DIGOXIN
     Route: 065
  5. SPIRONOLACTONE. [Concomitant]
     Active Substance: SPIRONOLACTONE
     Route: 065
  6. SYNTHROID [Concomitant]
     Active Substance: LEVOTHYROXINE SODIUM
     Route: 065
  7. RIOCIGUAT. [Suspect]
     Active Substance: RIOCIGUAT
     Indication: PRODUCT USED FOR UNKNOWN INDICATION
     Dosage: (COMBINED WITH 1/2 TAB OF 2.5 MG FOR A TOTAL OF 1.75 MG PER DOSE, TID)
     Route: 048
     Dates: start: 20170524
  8. SOTALOL HCL [Concomitant]
     Active Substance: SOTALOL
     Route: 065
  9. DILTIAZEM. [Concomitant]
     Active Substance: DILTIAZEM
     Route: 065
  10. SAW PALMETTO [Concomitant]
     Active Substance: HERBALS\SAW PALMETTO
     Route: 065
  11. ZOFRAN [Concomitant]
     Active Substance: ONDANSETRON HYDROCHLORIDE
     Route: 065
  12. TORASEMIDE [Concomitant]
     Active Substance: TORSEMIDE
     Route: 065
  13. METOPROLOL SUCCINATE. [Concomitant]
     Active Substance: METOPROLOL SUCCINATE
     Route: 065
  14. BETAPACE [Concomitant]
     Active Substance: SOTALOL HYDROCHLORIDE
     Route: 065
  15. DEMADEX [Concomitant]
     Active Substance: TORSEMIDE
     Route: 065
  16. COMPAZINE [Concomitant]
     Active Substance: PROCHLORPERAZINE MALEATE
     Route: 065
  17. DECADRON [Concomitant]
     Active Substance: DEXAMETHASONE
     Route: 065
  18. REVLIMID [Suspect]
     Active Substance: LENALIDOMIDE
     Indication: PLASMA CELL MYELOMA
     Dosage: FOR 2 WEEKS THEN STOP FOR 1 WEEK
     Route: 065
  19. RIOCIGUAT. [Suspect]
     Active Substance: RIOCIGUAT
     Indication: PRODUCT USED FOR UNKNOWN INDICATION
     Route: 065
     Dates: end: 2016
  20. XARELTO [Suspect]
     Active Substance: RIVAROXABAN
     Indication: PRODUCT USED FOR UNKNOWN INDICATION
     Dosage: EVERY AFTERNOON OR EVENING
     Route: 048
  21. ZYLOPRIM [Suspect]
     Active Substance: ALLOPURINOL
     Indication: PRODUCT USED FOR UNKNOWN INDICATION
     Route: 065
  22. ZOCOR [Concomitant]
     Active Substance: SIMVASTATIN
     Route: 065
  23. LIDODERM [Concomitant]
     Active Substance: LIDOCAINE
     Route: 065
  24. BOSENTAN. [Suspect]
     Active Substance: BOSENTAN
     Indication: PULMONARY HYPERTENSION
     Route: 048
     Dates: start: 20120831
  25. COUMADIN [Suspect]
     Active Substance: WARFARIN SODIUM
     Indication: PRODUCT USED FOR UNKNOWN INDICATION
     Route: 065
  26. ZOVIRAX [Suspect]
     Active Substance: ACYCLOVIR
     Indication: PRODUCT USED FOR UNKNOWN INDICATION
     Route: 065

REACTIONS (12)
  - Staphylococcal infection [Unknown]
  - Inappropriate schedule of drug administration [Unknown]
  - Right ventricular failure [Unknown]
  - Skin haemorrhage [Recovered/Resolved]
  - Atrial flutter [Recovered/Resolved]
  - Epistaxis [Unknown]
  - Septic shock [Unknown]
  - Streptococcal sepsis [Unknown]
  - Head injury [Recovered/Resolved]
  - Clostridium difficile infection [Unknown]
  - Weight increased [Unknown]
  - Acute kidney injury [Unknown]

NARRATIVE: CASE EVENT DATE: 201607
